FAERS Safety Report 19720338 (Version 1)
Quarter: 2021Q3

REPORT INFORMATION
  Report Type: Spontaneous
  Country: HN (occurrence: HN)
  Receive Date: 20210819
  Receipt Date: 20210819
  Transmission Date: 20211014
  Serious: Yes (Other)
  Sender: FDA-Public Use
  Company Number: HN-SA-2021SA272099

PATIENT
  Age: 61 Year
  Sex: Female

DRUGS (2)
  1. LANTUS SOLOSTAR [Suspect]
     Active Substance: INSULIN GLARGINE
     Dosage: 34 IU, QD
     Route: 058
  2. LANTUS SOLOSTAR [Suspect]
     Active Substance: INSULIN GLARGINE
     Indication: DIABETES MELLITUS
     Dosage: 28 IU, QD
     Route: 058
     Dates: start: 2019

REACTIONS (11)
  - Limb injury [Recovering/Resolving]
  - Joint injury [Recovering/Resolving]
  - Blindness unilateral [Recovering/Resolving]
  - Diabetes mellitus inadequate control [Recovering/Resolving]
  - Fall [Recovering/Resolving]
  - Blood pressure increased [Recovering/Resolving]
  - Thyroid hormones increased [Recovering/Resolving]
  - Eye inflammation [Recovering/Resolving]
  - Blood glucose increased [Recovering/Resolving]
  - Blood triglycerides abnormal [Recovering/Resolving]
  - Injury [Recovering/Resolving]

NARRATIVE: CASE EVENT DATE: 2020
